FAERS Safety Report 11697191 (Version 1)
Quarter: 2015Q4

REPORT INFORMATION
  Report Type: Spontaneous
  Country: US (occurrence: US)
  Receive Date: 20151104
  Receipt Date: 20151104
  Transmission Date: 20160304
  Serious: No
  Sender: FDA-Public Use
  Company Number: US-EMD SERONO-8050223

PATIENT
  Age: 51 Year
  Sex: Male

DRUGS (2)
  1. REBIF [Suspect]
     Active Substance: INTERFERON BETA-1A
     Dates: end: 20151019
  2. REBIF [Suspect]
     Active Substance: INTERFERON BETA-1A
     Indication: PRODUCT USED FOR UNKNOWN INDICATION
     Dates: start: 20151002

REACTIONS (5)
  - Infrequent bowel movements [Unknown]
  - Influenza like illness [Unknown]
  - Rhinorrhoea [Unknown]
  - Eye pruritus [Unknown]
  - Nausea [Unknown]
